FAERS Safety Report 9265809 (Version 5)
Quarter: 2014Q3

REPORT INFORMATION
  Report Type: Spontaneous
  Country: US (occurrence: US)
  Receive Date: 20130501
  Receipt Date: 20140924
  Transmission Date: 20150326
  Serious: Yes (Death)
  Sender: FDA-Public Use
  Company Number: US-GLAXOSMITHKLINE-A1022092A

PATIENT
  Age: 66 Year
  Sex: Male

DRUGS (3)
  1. ETODOLAC. [Concomitant]
     Active Substance: ETODOLAC
  2. VOTRIENT [Suspect]
     Active Substance: PAZOPANIB HYDROCHLORIDE
     Indication: MALIGNANT URINARY TRACT NEOPLASM
     Dosage: 800MG PER DAY
     Route: 065
     Dates: start: 20130405
  3. ZOFRAN [Concomitant]
     Active Substance: ONDANSETRON HYDROCHLORIDE

REACTIONS (5)
  - Cholecystectomy [Unknown]
  - Headache [Unknown]
  - Vomiting [Unknown]
  - Gallbladder operation [Unknown]
  - Death [Fatal]

NARRATIVE: CASE EVENT DATE: 20130418
